FAERS Safety Report 20740299 (Version 2)
Quarter: 2022Q2

REPORT INFORMATION
  Report Type: Spontaneous
  Country: CA (occurrence: CA)
  Receive Date: 20220422
  Receipt Date: 20220429
  Transmission Date: 20220721
  Serious: Yes (Other)
  Sender: FDA-Public Use
  Company Number: CA-PFIZER INC-202200584584

PATIENT
  Age: 24 Year
  Sex: Female

DRUGS (5)
  1. SULFASALAZINE [Suspect]
     Active Substance: SULFASALAZINE
     Dosage: 1 G, 2X/DAY
     Route: 065
  2. INFLECTRA [Concomitant]
     Active Substance: INFLIXIMAB-DYYB
     Indication: Crohn^s disease
     Dosage: 400 MG, EVERY 8 WEEKS
     Route: 042
     Dates: start: 20220111
  3. INFLECTRA [Concomitant]
     Active Substance: INFLIXIMAB-DYYB
     Dosage: 400 MG, EVERY 8 WEEKS
     Route: 042
     Dates: start: 20220307
  4. DEPO-PROVERA [Concomitant]
     Active Substance: MEDROXYPROGESTERONE ACETATE
  5. ALBUTEROL [Concomitant]
     Active Substance: ALBUTEROL

REACTIONS (1)
  - Crohn^s disease [Unknown]
